FAERS Safety Report 14919806 (Version 3)
Quarter: 2018Q2

REPORT INFORMATION
  Report Type: Report from Study
  Country: None (occurrence: CA)
  Receive Date: 20180521
  Receipt Date: 20180612
  Transmission Date: 20180711
  Serious: Yes (Hospitalization, Other)
  Sender: FDA-Public Use
  Company Number: CA-ABBVIE-18K-028-2361358-00

PATIENT
  Age: 56 Year
  Sex: Male
  Weight: 54.48 kg

DRUGS (3)
  1. LEVODOPA [Concomitant]
     Active Substance: LEVODOPA
     Indication: PARKINSON^S DISEASE
     Dates: start: 20161205
  2. PRAMIPEXOLE. [Concomitant]
     Active Substance: PRAMIPEXOLE
     Indication: PRODUCT USED FOR UNKNOWN INDICATION
  3. DUODOPA [Suspect]
     Active Substance: CARBIDOPA\LEVODOPA
     Indication: PARKINSON^S DISEASE
     Dosage: MORNING BOLUS: 9 ML??CONTINUOUS DOSE RATE: 2.2 ML/H??EXTRA DOSE: 1 ML
     Route: 050
     Dates: start: 20161205

REACTIONS (6)
  - Prostatic disorder [Unknown]
  - Fall [Recovering/Resolving]
  - Osteoporosis [Unknown]
  - Fall [Unknown]
  - Hip fracture [Recovering/Resolving]
  - Balance disorder [Unknown]

NARRATIVE: CASE EVENT DATE: 20180517
